FAERS Safety Report 6283310-5 (Version None)
Quarter: 2009Q3

REPORT INFORMATION
  Report Type: 
  Country: None (occurrence: None)
  Receive Date: 20090722
  Receipt Date: 20090722
  Transmission Date: 20100115
  Serious: Yes (Hospitalization)
  Sender: FDA-Public Use
  Company Number: None

PATIENT
  Age: 6 Year
  Sex: Male
  Weight: 23.587 kg

DRUGS (3)
  1. ZICAM COLD REMEDY RAPIDMELTS + VITAMIN C [Suspect]
     Indication: COUGH
     Dosage: 1 SINGLE TABLET ORAL
     Route: 048
     Dates: start: 20090209, end: 20090212
  2. ALBUTEROL [Concomitant]
  3. PULMICORT (FOLLOW UP INFORMATION) [Concomitant]

REACTIONS (1)
  - DYSPNOEA [None]
